FAERS Safety Report 7465634-9 (Version None)
Quarter: 2011Q2

REPORT INFORMATION
  Report Type: 
  Country: None (occurrence: None)
  Receive Date: 20110509
  Receipt Date: 20110429
  Transmission Date: 20111010
  Serious: Yes (Other)
  Sender: FDA-Public Use
  Company Number: A0840333A

PATIENT
  Age: 43 Year
  Sex: Male
  Weight: 136.8 kg

DRUGS (1)
  1. AVANDIA [Suspect]
     Indication: DIABETES MELLITUS
     Dosage: 4MG FOUR TIMES PER DAY
     Route: 048
     Dates: start: 20030101, end: 20070901

REACTIONS (6)
  - MUSCLE SPASMS [None]
  - HYPOAESTHESIA [None]
  - OBESITY [None]
  - CONDITION AGGRAVATED [None]
  - MYOCARDIAL INFARCTION [None]
  - FLUID RETENTION [None]
